FAERS Safety Report 24623359 (Version 1)
Quarter: 2024Q4

REPORT INFORMATION
  Report Type: Spontaneous
  Country: US (occurrence: US)
  Receive Date: 20241115
  Receipt Date: 20241115
  Transmission Date: 20250115
  Serious: No
  Sender: STALLERGENES
  Company Number: US-STALCOR-2024-AER-02128

PATIENT
  Sex: Female

DRUGS (5)
  1. PALFORZIA [Suspect]
     Active Substance: PEANUT
     Indication: Food allergy
     Dosage: 300MG: MAINTENANCE: MIX CONTENTS OF 1 SACHET WELL WITH SEMI SOLID FOOD AS DIRECTED AND CONSUME ONCE
     Route: 048
  2. CETIRIZINE [Concomitant]
     Active Substance: CETIRIZINE HYDROCHLORIDE
     Indication: Product used for unknown indication
     Dosage: CHEWABLE
  3. MONTELUKAST [Concomitant]
     Active Substance: MONTELUKAST
     Indication: Product used for unknown indication
     Dosage: CHEWABLE
  4. VITAMINS [Concomitant]
     Active Substance: VITAMINS
     Indication: Product used for unknown indication
     Dosage: CHEWABLE
  5. TRIAMCINOLONE [Concomitant]
     Active Substance: TRIAMCINOLONE
     Indication: Product used for unknown indication

REACTIONS (2)
  - Lip oedema [Not Recovered/Not Resolved]
  - Eye oedema [Not Recovered/Not Resolved]
